FAERS Safety Report 8104506-3 (Version None)
Quarter: 2012Q1

REPORT INFORMATION
  Report Type: 
  Country: None (occurrence: None)
  Receive Date: 20120201
  Receipt Date: 20120124
  Transmission Date: 20120608
  Serious: Yes (Other)
  Sender: FDA-Public Use
  Company Number: PHHY2012DK006164

PATIENT
  Sex: Male
  Weight: 95 kg

DRUGS (1)
  1. ANCOZAN COMP [Suspect]
     Indication: HYPERTENSION
     Dosage: 1 DF, QD
     Dates: start: 20110430, end: 20110817

REACTIONS (21)
  - TINNITUS [None]
  - DECREASED APPETITE [None]
  - GOUT [None]
  - VISUAL IMPAIRMENT [None]
  - MENIERE'S DISEASE [None]
  - VOMITING [None]
  - FATIGUE [None]
  - ASTHENIA [None]
  - OROPHARYNGEAL PAIN [None]
  - CONFUSIONAL STATE [None]
  - VISION BLURRED [None]
  - MIGRAINE [None]
  - AMNESIA [None]
  - NAUSEA [None]
  - THROAT IRRITATION [None]
  - ERECTILE DYSFUNCTION [None]
  - DIZZINESS [None]
  - PHOTOPHOBIA [None]
  - LIBIDO DECREASED [None]
  - ARTHRALGIA [None]
  - DEPRESSION [None]
